FAERS Safety Report 4705580-4 (Version None)
Quarter: 2005Q2

REPORT INFORMATION
  Report Type: 
  Country: None (occurrence: None)
  Receive Date: 20050629
  Receipt Date: 20040712
  Transmission Date: 20051028
  Serious: Yes (Death)
  Sender: FDA-Public Use
  Company Number: 200416563GDDC

PATIENT
  Age: 64 Year
  Sex: Male
  Weight: 66.15 kg

DRUGS (16)
  1. CISPLATIN [Suspect]
     Indication: TONGUE NEOPLASM MALIGNANT STAGE UNSPECIFIED
     Dosage: 129.375 MG/DAY IV
     Route: 042
     Dates: start: 20040621, end: 20040621
  2. FLUOROURACIL [Suspect]
     Indication: TONGUE NEOPLASM MALIGNANT STAGE UNSPECIFIED
     Dosage: 1725 MG/DAY IV
     Route: 042
     Dates: start: 20040621, end: 20040626
  3. DEXAMETHASONE [Concomitant]
  4. ANZEMET [Concomitant]
  5. LASIX [Concomitant]
  6. ATIVAN [Concomitant]
  7. DIAMICRON [Concomitant]
  8. HUMALOG [Concomitant]
  9. DURAGESIC-100 [Concomitant]
  10. ARESTAL [Concomitant]
  11. MUCOPECT [Concomitant]
  12. POTASSIUM CHLORIDE [Concomitant]
  13. MACPERAN [Concomitant]
  14. MORPHINE [Concomitant]
  15. NOVOLIN N [Concomitant]
  16. OXYCONTIN [Concomitant]

REACTIONS (5)
  - ILEUS PARALYTIC [None]
  - NEPHROPATHY TOXIC [None]
  - PNEUMONIA [None]
  - RESPIRATORY FAILURE [None]
  - SEPTIC SHOCK [None]
